FAERS Safety Report 7676484-2 (Version None)
Quarter: 2011Q3

REPORT INFORMATION
  Report Type: 
  Country: None (occurrence: None)
  Receive Date: 20110809
  Receipt Date: 20110809
  Transmission Date: 20111222
  Serious: No
  Sender: FDA-Public Use
  Company Number: None

PATIENT
  Sex: Male
  Weight: 63.3 kg

DRUGS (4)
  1. LEUCOVORIN CALCIUM [Suspect]
     Dosage: 69 MG
     Dates: end: 20110706
  2. ELOXATIN [Suspect]
     Dosage: 144 MG
     Dates: end: 20110706
  3. FLUOROURACIL [Suspect]
     Dosage: 4872 MG
     Dates: end: 20110706
  4. BEVACIZUMAB (RHUMAB VEGF) [Suspect]
     Dosage: 355 MG
     Dates: end: 20110706

REACTIONS (2)
  - HYPOALBUMINAEMIA [None]
  - MALAISE [None]
